FAERS Safety Report 8343273-5 (Version None)
Quarter: 2012Q2

REPORT INFORMATION
  Report Type: 
  Country: None (occurrence: None)
  Receive Date: 20120508
  Receipt Date: 20120430
  Transmission Date: 20120825
  Serious: Yes (Other)
  Sender: FDA-Public Use
  Company Number: US-BAYER-2012-014700

PATIENT
  Age: 45 Year
  Sex: Female

DRUGS (6)
  1. KEFLEX [Concomitant]
     Dosage: 500 MG, UNK
  2. PROTONIX [Concomitant]
     Dosage: 40 MG, UNK
  3. YAZ [Suspect]
     Dosage: UNK
     Dates: start: 20080501
  4. YASMIN [Suspect]
     Dosage: UNK
     Dates: start: 20080501
  5. XANAX [Concomitant]
     Dosage: UNK
  6. IBUPROFEN [Concomitant]
     Dosage: 800 MG, UNK

REACTIONS (2)
  - PAIN [None]
  - THROMBOPHLEBITIS SUPERFICIAL [None]
